FAERS Safety Report 8222656-8 (Version None)
Quarter: 2012Q1

REPORT INFORMATION
  Report Type: 
  Country: None (occurrence: None)
  Receive Date: 20120320
  Receipt Date: 20120314
  Transmission Date: 20120608
  Serious: Yes (Other)
  Sender: FDA-Public Use
  Company Number: CA-US-EMD SERONO, INC.-7002388

PATIENT
  Sex: Female

DRUGS (3)
  1. TYLENOL [Concomitant]
     Indication: PRODUCT USED FOR UNKNOWN INDICATION
  2. REBIF [Suspect]
     Route: 058
  3. REBIF [Suspect]
     Indication: RELAPSING-REMITTING MULTIPLE SCLEROSIS
     Route: 058
     Dates: start: 20100402

REACTIONS (17)
  - VOMITING [None]
  - MUSCULAR WEAKNESS [None]
  - HEADACHE [None]
  - FUNGAL INFECTION [None]
  - UNDERDOSE [None]
  - WEIGHT DECREASED [None]
  - INJECTION SITE EXTRAVASATION [None]
  - HAEMOBILIA [None]
  - NAUSEA [None]
  - ALOPECIA [None]
  - INJECTION SITE PAIN [None]
  - FATIGUE [None]
  - ABDOMINAL DISCOMFORT [None]
  - RENAL PAIN [None]
  - MALAISE [None]
  - INJECTION SITE ERYTHEMA [None]
  - INFLUENZA LIKE ILLNESS [None]
